FAERS Safety Report 8086242-5 (Version None)
Quarter: 2012Q1

REPORT INFORMATION
  Report Type: 
  Country: None (occurrence: None)
  Receive Date: 20120128
  Receipt Date: 20110413
  Transmission Date: 20120608
  Serious: No
  Sender: FDA-Public Use
  Company Number: US-ABBOTT-11P-163-0719714-00

PATIENT
  Sex: Female

DRUGS (1)
  1. HUMIRA [Suspect]
     Indication: CROHN'S DISEASE
     Dosage: ONE TIME ONLY
     Dates: start: 20110401, end: 20110401

REACTIONS (3)
  - MUSCLE TIGHTNESS [None]
  - FATIGUE [None]
  - MUSCULOSKELETAL STIFFNESS [None]
